FAERS Safety Report 5266283-3 (Version None)
Quarter: 2007Q1

REPORT INFORMATION
  Report Type: 
  Country: None (occurrence: None)
  Receive Date: 20070315
  Receipt Date: 20070301
  Transmission Date: 20070707
  Serious: Yes (Other)
  Sender: FDA-Public Use
  Company Number: PHBS2007BE03961

PATIENT
  Sex: Female

DRUGS (6)
  1. VALSARTAN AND HYDROCHLOROTHIAZIDE [Suspect]
     Indication: HYPERTENSION
     Dosage: 160 MG VALS - 12.5 MG HCT
     Route: 048
     Dates: start: 20050101
  2. VALSARTAN AND HYDROCHLOROTHIAZIDE [Suspect]
     Dosage: 160 MG VALS - 25 MG HCT
     Route: 048
     Dates: end: 20061201
  3. ANTIDEPRESSANTS [Concomitant]
  4. LEXOTAN [Concomitant]
  5. VOLTAREN [Concomitant]
  6. LASIX [Concomitant]

REACTIONS (3)
  - CARDIAC FAILURE [None]
  - DERMATITIS ALLERGIC [None]
  - PRURITUS GENERALISED [None]
